FAERS Safety Report 5563641-4 (Version None)
Quarter: 2007Q4

REPORT INFORMATION
  Report Type: 
  Country: None (occurrence: None)
  Receive Date: 20071217
  Receipt Date: 20071207
  Transmission Date: 20080405
  Serious: Yes (Other)
  Sender: FDA-Public Use
  Company Number: GB-JNJFOC-20071202679

PATIENT
  Sex: Female
  Weight: 60 kg

DRUGS (7)
  1. REMICADE [Suspect]
     Indication: RHEUMATOID ARTHRITIS
     Route: 042
  2. METHOTREXATE [Concomitant]
  3. PREDNISOLONE [Concomitant]
  4. ACTONEL [Concomitant]
  5. CALCICHEW [Concomitant]
  6. IBUPROFEN [Concomitant]
  7. LANSOPRAZOLE [Concomitant]

REACTIONS (1)
  - SKIN CANCER [None]
